FAERS Safety Report 6865978-5 (Version None)
Quarter: 2010Q3

REPORT INFORMATION
  Report Type: 
  Country: None (occurrence: None)
  Receive Date: 20100722
  Receipt Date: 20100708
  Transmission Date: 20110219
  Serious: Yes (Disabling)
  Sender: FDA-Public Use
  Company Number: PHHY2010TR44915

PATIENT
  Age: 51 Year
  Sex: Female

DRUGS (3)
  1. ZOMETA [Suspect]
     Indication: BREAST CANCER
     Dosage: UNK
     Route: 042
     Dates: start: 20050501
  2. ZOMETA [Suspect]
     Indication: METASTASES TO BONE
  3. AROMASIN [Concomitant]

REACTIONS (1)
  - OSTEONECROSIS [None]
